FAERS Safety Report 21948449 (Version 2)
Quarter: 2023Q1

REPORT INFORMATION
  Report Type: Spontaneous
  Country: BE (occurrence: BE)
  Receive Date: 20230203
  Receipt Date: 20230222
  Transmission Date: 20230418
  Serious: Yes (Hospitalization)
  Sender: FDA-Public Use
  Company Number: BE-AstraZeneca-2023A025155

PATIENT
  Age: 0 Year
  Sex: Male
  Weight: 6 kg

DRUGS (5)
  1. SYNAGIS [Suspect]
     Active Substance: PALIVIZUMAB
     Indication: Product used for unknown indication
     Dates: start: 20221115
  2. SYNAGIS [Suspect]
     Active Substance: PALIVIZUMAB
  3. SYNAGIS [Suspect]
     Active Substance: PALIVIZUMAB
     Dates: start: 20221212, end: 20230123
  4. D-IXX [Concomitant]
     Dosage: 2 GTT DAILY (2 DROPS)
  5. IRON [Concomitant]
     Active Substance: IRON
     Indication: Premature baby
     Dosage: 7 GTT BID, 2 TIMES A DAY PO

REACTIONS (1)
  - Respiratory syncytial virus infection [Recovering/Resolving]

NARRATIVE: CASE EVENT DATE: 20230125
